FAERS Safety Report 4703951-3 (Version None)
Quarter: 2005Q2

REPORT INFORMATION
  Report Type: 
  Country: None (occurrence: None)
  Receive Date: 20050630
  Receipt Date: 20041214
  Transmission Date: 20051028
  Serious: Yes (Hospitalization)
  Sender: FDA-Public Use
  Company Number: FR-ABBOTT-04P-056-0283924-00

PATIENT
  Sex: Male

DRUGS (8)
  1. RITONAVIR SOFT GELATIN CAPSULES [Suspect]
     Indication: HIV INFECTION
     Route: 048
     Dates: start: 20040317, end: 20040413
  2. TIPRANAVIR [Concomitant]
     Indication: HIV INFECTION
     Route: 048
     Dates: start: 20040317, end: 20040413
  3. FUZEON [Concomitant]
     Indication: HIV INFECTION
     Route: 048
     Dates: start: 20030923
  4. EMTRIVA [Concomitant]
     Indication: HIV INFECTION
     Route: 048
     Dates: start: 20040317
  5. ALPRAZOLAM [Concomitant]
     Indication: ANXIETY
     Route: 048
     Dates: start: 20031008
  6. VFEND [Concomitant]
     Indication: ORAL CANDIDIASIS
     Route: 048
     Dates: start: 20030924
  7. BACTRIM [Concomitant]
     Indication: DRUG USE FOR UNKNOWN INDICATION
     Route: 048
  8. AZITHROMYCIN [Concomitant]
     Indication: DRUG USE FOR UNKNOWN INDICATION
     Route: 048

REACTIONS (3)
  - HEPATIC CIRRHOSIS [None]
  - JAUNDICE [None]
  - URINARY TRACT INFECTION [None]
